FAERS Safety Report 9674596 (Version 1)
Quarter: 2013Q4

REPORT INFORMATION
  Report Type: Spontaneous
  Country: US (occurrence: None)
  Receive Date: 20131106
  Receipt Date: 20131106
  Transmission Date: 20140711
  Serious: Yes (Disabling)
  Sender: FDA-Public Use
  Company Number: None

PATIENT
  Age: 71 Year
  Sex: Male
  Weight: 74.84 kg

DRUGS (10)
  1. CIPROFLOXACIN [Suspect]
     Indication: PROSTATITIS
     Route: 048
     Dates: start: 20131015, end: 20131026
  2. RAMIPRIL [Concomitant]
  3. HYDROCHLOROTHIAZIDE [Concomitant]
  4. CIALIS [Concomitant]
  5. TAMSULOSIN [Concomitant]
  6. CENTRUM SILVER [Concomitant]
  7. VIT. D3 [Concomitant]
  8. GELATIN [Concomitant]
  9. GLUCOSAMINE SULFATE [Concomitant]
  10. ASPIRIN [Concomitant]

REACTIONS (3)
  - Musculoskeletal stiffness [None]
  - Myalgia [None]
  - Gait disturbance [None]
